FAERS Safety Report 7630582-8 (Version None)
Quarter: 2011Q3

REPORT INFORMATION
  Report Type: 
  Country: None (occurrence: None)
  Receive Date: 20110722
  Receipt Date: 20110713
  Transmission Date: 20111222
  Serious: Yes (Other)
  Sender: FDA-Public Use
  Company Number: US-PFIZER INC-2011143502

PATIENT
  Sex: Female
  Weight: 100 kg

DRUGS (8)
  1. VICODIN [Concomitant]
     Indication: PAIN
     Dosage: 500 MG, 2X/DAY
     Route: 048
  2. SYNTHROID [Concomitant]
     Indication: THYROID DISORDER
     Dosage: 50 UG, DAILY
     Route: 048
  3. CRESTOR [Concomitant]
     Indication: BLOOD CHOLESTEROL INCREASED
     Dosage: 5 MG, DAILY
     Route: 048
  4. LOVAZA [Concomitant]
     Indication: BLOOD CHOLESTEROL INCREASED
     Dosage: 1000 MG, 3X/DAY
     Route: 048
  5. HYDROCORTISONE [Suspect]
     Indication: ADDISON'S DISEASE
     Dosage: UNK, 3X/DAY
     Route: 048
     Dates: start: 20101001
  6. VALIUM [Concomitant]
     Indication: ANXIETY
     Dosage: 5 MG, AS NEEDED
     Route: 048
  7. ASCORBIC ACID [Concomitant]
     Indication: VITAMIN C DEFICIENCY
     Dosage: 500 MG, DAILY
     Route: 048
  8. VITAMIN D [Concomitant]
     Indication: VITAMIN D DEFICIENCY
     Dosage: 1000 IU, DAILY
     Route: 048

REACTIONS (1)
  - WEIGHT INCREASED [None]
